FAERS Safety Report 24751193 (Version 1)
Quarter: 2024Q4

REPORT INFORMATION
  Report Type: Spontaneous
  Country: BR (occurrence: BR)
  Receive Date: 20241219
  Receipt Date: 20241219
  Transmission Date: 20250115
  Serious: Yes (Other)
  Sender: SANDOZ
  Company Number: BR-002147023-NVSC2024BR239107

PATIENT
  Sex: Female

DRUGS (4)
  1. RIBOCICLIB [Suspect]
     Active Substance: RIBOCICLIB
     Indication: Breast cancer
     Dosage: UNK
     Route: 065
  2. ZOLPIDEM [Suspect]
     Active Substance: ZOLPIDEM TARTRATE
     Indication: Anxiety
     Dosage: UNK
     Route: 065
  3. TOPIRAMATE [Concomitant]
     Active Substance: TOPIRAMATE
     Indication: Anxiety
     Dosage: UNK
     Route: 065
  4. VENLAFAXINE [Concomitant]
     Active Substance: VENLAFAXINE HYDROCHLORIDE
     Indication: Anxiety
     Dosage: UNK
     Route: 065

REACTIONS (2)
  - Type 2 diabetes mellitus [Unknown]
  - Central obesity [Unknown]
